FAERS Safety Report 11617320 (Version 1)
Quarter: 2015Q4

REPORT INFORMATION
  Report Type: Spontaneous
  Country: FR (occurrence: FR)
  Receive Date: 20151009
  Receipt Date: 20151009
  Transmission Date: 20160304
  Serious: Yes (Hospitalization)
  Sender: FDA-Public Use
  Company Number: FR-SA-2015SA153850

PATIENT
  Age: 40 Year
  Sex: Male

DRUGS (3)
  1. LASILIX [Suspect]
     Active Substance: FUROSEMIDE
     Route: 042
     Dates: start: 20150722, end: 20150731
  2. AMIKACIN [Suspect]
     Active Substance: AMIKACIN
     Route: 042
     Dates: start: 20150729, end: 20150730
  3. SEVORANE [Suspect]
     Active Substance: SEVOFLURANE
     Route: 065
     Dates: start: 20150729, end: 20150805

REACTIONS (1)
  - Renal tubular necrosis [Recovered/Resolved]

NARRATIVE: CASE EVENT DATE: 20150731
